FAERS Safety Report 25238956 (Version 1)
Quarter: 2025Q2

REPORT INFORMATION
  Report Type: Spontaneous
  Country: US (occurrence: US)
  Receive Date: 20250425
  Receipt Date: 20250425
  Transmission Date: 20250717
  Serious: Yes (Hospitalization, Other)
  Sender: ACCORD
  Company Number: US-Accord-480815

PATIENT
  Age: 75 Year
  Sex: Female

DRUGS (2)
  1. HYDROXYCHLOROQUINE [Suspect]
     Active Substance: HYDROXYCHLOROQUINE
     Indication: Autoimmune hepatitis
     Dosage: HCQ 200 MG (400 MG ON?ALTERNATE DAYS) TWICE DAILY FOR MORE THAN 30 YEARS.
  2. HYDROXYCHLOROQUINE [Suspect]
     Active Substance: HYDROXYCHLOROQUINE
     Indication: Systemic lupus erythematosus
     Dosage: HCQ 200 MG (400 MG ON?ALTERNATE DAYS) TWICE DAILY FOR MORE THAN 30 YEARS.

REACTIONS (9)
  - Cardiomyopathy [Recovered/Resolved]
  - Cardiac failure [Recovered/Resolved]
  - Atrioventricular block first degree [Recovered/Resolved]
  - Off label use [Unknown]
  - Mitral valve incompetence [Recovered/Resolved]
  - Diastolic dysfunction [Recovered/Resolved]
  - Ventricular hypokinesia [Recovered/Resolved]
  - Bundle branch block right [Recovered/Resolved]
  - Coronary artery disease [Recovered/Resolved]
